FAERS Safety Report 11538806 (Version 1)
Quarter: 2015Q3

REPORT INFORMATION
  Report Type: Spontaneous
  Country: US (occurrence: US)
  Receive Date: 20150923
  Receipt Date: 20150923
  Transmission Date: 20151125
  Serious: Yes (Other)
  Sender: FDA-Public Use
  Company Number: US-ROCHE-1637022

PATIENT
  Sex: Female

DRUGS (3)
  1. DOCETAXEL. [Concomitant]
     Active Substance: DOCETAXEL
  2. LETROZOLE. [Concomitant]
     Active Substance: LETROZOLE
  3. XELODA [Suspect]
     Active Substance: CAPECITABINE
     Indication: PRODUCT USED FOR UNKNOWN INDICATION
     Route: 065

REACTIONS (7)
  - Neoplasm [Unknown]
  - Metastases to liver [Unknown]
  - Metastases to lung [Unknown]
  - Cough [Unknown]
  - Dyskinesia [Unknown]
  - Brain neoplasm [Unknown]
  - Metastases to the mediastinum [Unknown]
